FAERS Safety Report 25829079 (Version 1)
Quarter: 2025Q3

REPORT INFORMATION
  Report Type: Spontaneous
  Country: EU (occurrence: EU)
  Receive Date: 20250922
  Receipt Date: 20250922
  Transmission Date: 20251021
  Serious: Yes (Hospitalization, Other)
  Sender: JOHNSON AND JOHNSON
  Company Number: EU-JNJFOC-20250932654

PATIENT
  Age: 46 Year
  Sex: Female
  Weight: 70 kg

DRUGS (24)
  1. XARELTO [Suspect]
     Active Substance: RIVAROXABAN
     Indication: Atrial fibrillation
     Route: 048
  2. XARELTO [Suspect]
     Active Substance: RIVAROXABAN
     Route: 048
     Dates: end: 20250827
  3. OPSUMIT [Concomitant]
     Active Substance: MACITENTAN
     Indication: Product used for unknown indication
     Route: 065
  4. IRON [Concomitant]
     Active Substance: IRON
     Indication: Anaemia
     Route: 065
  5. IRON [Concomitant]
     Active Substance: IRON
     Indication: Prophylaxis
  6. POTASSIUM CHLORIDE [Concomitant]
     Active Substance: POTASSIUM CHLORIDE
     Indication: Hypokalaemia
     Route: 065
     Dates: start: 20250827
  7. POTASSIUM CHLORIDE [Concomitant]
     Active Substance: POTASSIUM CHLORIDE
     Indication: Prophylaxis
  8. APIXABAN [Concomitant]
     Active Substance: APIXABAN
     Indication: Cardiac failure
     Route: 065
     Dates: start: 20250827
  9. PROPRANOLOL [Concomitant]
     Active Substance: PROPRANOLOL HYDROCHLORIDE
     Indication: Hypertension
     Route: 065
     Dates: start: 20250827
  10. NEBIVOLOL [Concomitant]
     Active Substance: NEBIVOLOL
     Indication: Cardiac failure
     Route: 065
  11. NEBIVOLOL [Concomitant]
     Active Substance: NEBIVOLOL
     Indication: Prophylaxis
     Route: 065
     Dates: start: 20250827
  12. FUROSEMIDE [Concomitant]
     Active Substance: FUROSEMIDE
     Indication: Cardiac failure
     Route: 048
  13. FUROSEMIDE [Concomitant]
     Active Substance: FUROSEMIDE
     Indication: Prophylaxis
  14. ALLOPURINOL [Concomitant]
     Active Substance: ALLOPURINOL
     Indication: Hypertension
     Route: 048
     Dates: start: 20231009
  15. ALLOPURINOL [Concomitant]
     Active Substance: ALLOPURINOL
     Indication: Prophylaxis
  16. TRIFAS [CICLOPIROX OLAMINE] [Concomitant]
     Indication: Cardiac failure
     Route: 048
  17. TRIFAS [CICLOPIROX OLAMINE] [Concomitant]
     Indication: Prophylaxis
  18. EUTHYROX [Concomitant]
     Active Substance: LEVOTHYROXINE SODIUM
     Indication: Hypothyroidism
     Route: 048
  19. PANTOPRAZOLE BLUEFISH [PANTOPRAZOLE] [Concomitant]
     Indication: Gastrooesophageal reflux disease
     Route: 048
  20. PANTOPRAZOLE BLUEFISH [PANTOPRAZOLE] [Concomitant]
     Indication: Prophylaxis
  21. HYDROCHLOROTHIAZIDE [Concomitant]
     Active Substance: HYDROCHLOROTHIAZIDE
     Indication: Cardiac failure
     Route: 048
  22. HYDROCHLOROTHIAZIDE [Concomitant]
     Active Substance: HYDROCHLOROTHIAZIDE
     Indication: Prophylaxis
  23. SPIRONOLACTONE [Concomitant]
     Active Substance: SPIRONOLACTONE
     Indication: Cardiac failure
     Route: 048
  24. SPIRONOLACTONE [Concomitant]
     Active Substance: SPIRONOLACTONE
     Indication: Prophylaxis

REACTIONS (12)
  - Cardiac failure [Unknown]
  - Renal impairment [Unknown]
  - Asthenia [Unknown]
  - Chronic kidney disease [Unknown]
  - Regurgitation [Unknown]
  - N-terminal prohormone brain natriuretic peptide increased [Recovering/Resolving]
  - Microcytic anaemia [Unknown]
  - Blood creatinine increased [Unknown]
  - Left atrial enlargement [Unknown]
  - Right ventricular enlargement [Unknown]
  - Mitral valve disease [Unknown]
  - Underweight [Unknown]

NARRATIVE: CASE EVENT DATE: 20250822
